FAERS Safety Report 17201462 (Version 1)
Quarter: 2019Q4

REPORT INFORMATION
  Report Type: Spontaneous
  Country: RU (occurrence: RU)
  Receive Date: 20191226
  Receipt Date: 20191226
  Transmission Date: 20200122
  Serious: Yes (Other)
  Sender: FDA-Public Use
  Company Number: RU-PFIZER INC-2019546834

PATIENT
  Age: 32 Year
  Sex: Female
  Weight: 64 kg

DRUGS (3)
  1. CABERGOLINE. [Suspect]
     Active Substance: CABERGOLINE
     Indication: BLOOD PROLACTIN INCREASED
     Dosage: UNK (DOSE OF 0.25 MG TWICE A WEEK)
  2. CABERGOLINE. [Suspect]
     Active Substance: CABERGOLINE
     Indication: AMENORRHOEA
     Dosage: 1 MG, WEEKLY (DOSE OF CAB 1 MG PER WEEK)
  3. CABERGOLINE. [Suspect]
     Active Substance: CABERGOLINE
     Indication: PITUITARY TUMOUR BENIGN
     Dosage: 1 MG, WEEKLY (DOSE OF 1 MG PER WEEK)

REACTIONS (1)
  - Abortion spontaneous [Unknown]
